FAERS Safety Report 5121874-5 (Version None)
Quarter: 2006Q4

REPORT INFORMATION
  Report Type: 
  Country: None (occurrence: None)
  Receive Date: 20061006
  Receipt Date: 20060822
  Transmission Date: 20070319
  Serious: Yes (Disabling)
  Sender: FDA-Public Use
  Company Number: US-MERCK-0608USA05383

PATIENT
  Age: 81 Year
  Sex: Male
  Weight: 72 kg

DRUGS (8)
  1. VYTORIN [Suspect]
     Indication: HYPERCHOLESTEROLAEMIA
     Route: 048
     Dates: start: 20040101, end: 20060725
  2. VYTORIN [Suspect]
     Route: 048
     Dates: start: 20060801, end: 20060801
  3. VYTORIN [Suspect]
     Route: 048
     Dates: start: 20060819, end: 20060821
  4. COZAAR [Concomitant]
     Route: 048
  5. METOPROLOL [Concomitant]
     Route: 065
  6. ASPIRIN [Concomitant]
     Route: 065
  7. PLAVIX [Concomitant]
     Route: 065
  8. ZOCOR [Suspect]
     Indication: HYPERCHOLESTEROLAEMIA
     Route: 048
     Dates: end: 20060901

REACTIONS (8)
  - ABDOMINAL DISTENSION [None]
  - ANOREXIA [None]
  - ASTHENIA [None]
  - ERUCTATION [None]
  - FATIGUE [None]
  - MYALGIA [None]
  - NAUSEA [None]
  - WEIGHT DECREASED [None]
